FAERS Safety Report 7275671-5 (Version None)
Quarter: 2011Q1

REPORT INFORMATION
  Report Type: 
  Country: None (occurrence: None)
  Receive Date: 20110204
  Receipt Date: 20110126
  Transmission Date: 20110831
  Serious: Yes (Hospitalization)
  Sender: FDA-Public Use
  Company Number: PL-JNJFOC-20110107491

PATIENT
  Age: 27 Year
  Sex: Female

DRUGS (7)
  1. METHOTREXATE [Concomitant]
     Indication: ARTHRITIS
     Route: 048
  2. MELOXICAM [Concomitant]
     Indication: ANTIINFLAMMATORY THERAPY
     Dosage: IMMEDIATE
  3. MELOXICAM [Concomitant]
     Indication: ANALGESIC THERAPY
     Dosage: IMMEDIATE
  4. REMICADE [Suspect]
     Indication: DERMATITIS PSORIASIFORM
     Route: 042
  5. ACIDUM FOLICUM [Concomitant]
     Indication: PROPHYLAXIS
     Route: 048
  6. CONTROLOC [Concomitant]
     Indication: GASTROINTESTINAL DISORDER THERAPY
  7. BIOFER [Concomitant]
     Indication: MINERAL SUPPLEMENTATION

REACTIONS (3)
  - VISUAL ACUITY REDUCED [None]
  - DEMYELINATION [None]
  - OPTIC NEURITIS [None]
